FAERS Safety Report 7996070-4 (Version None)
Quarter: 2011Q4

REPORT INFORMATION
  Report Type: 
  Country: None (occurrence: None)
  Receive Date: 20111220
  Receipt Date: 20111212
  Transmission Date: 20120403
  Serious: Yes (Hospitalization)
  Sender: FDA-Public Use
  Company Number: PHEH2011US011529

PATIENT
  Sex: Female
  Weight: 63 kg

DRUGS (1)
  1. GLEEVEC [Suspect]
     Indication: CHROMOSOME ANALYSIS ABNORMAL
     Dosage: 400 MG, QD
     Route: 048

REACTIONS (1)
  - ENTEROCOCCAL INFECTION [None]
